FAERS Safety Report 25887046 (Version 1)
Quarter: 2025Q4

REPORT INFORMATION
  Report Type: Spontaneous
  Country: US (occurrence: US)
  Receive Date: 20251006
  Receipt Date: 20251006
  Transmission Date: 20260117
  Serious: No
  Sender: BRISTOL-MYERS SQUIBB COMPANY
  Company Number: US-BRISTOL-MYERS SQUIBB COMPANY-2025-136195

PATIENT
  Age: 76 Year
  Sex: Male

DRUGS (2)
  1. ELIQUIS [Suspect]
     Active Substance: APIXABAN
     Indication: Renal cancer
  2. CABOMETYX [Interacting]
     Active Substance: CABOZANTINIB S-MALATE
     Indication: Renal cancer

REACTIONS (2)
  - Drug interaction [Unknown]
  - Off label use [Unknown]
